FAERS Safety Report 22370652 (Version 5)
Quarter: 2025Q3

REPORT INFORMATION
  Report Type: Report from Study
  Country: US (occurrence: US)
  Receive Date: 20230526
  Receipt Date: 20250710
  Transmission Date: 20251021
  Serious: Yes (Death, Hospitalization, Other)
  Sender: JAZZ
  Company Number: US-JAZZ PHARMACEUTICALS-2023-US-011252

PATIENT
  Age: 49 Year
  Sex: Male

DRUGS (12)
  1. EPIDIOLEX [Suspect]
     Active Substance: CANNABIDIOL
     Indication: Lennox-Gastaut syndrome
     Route: 048
     Dates: start: 201903
  2. EPIDIOLEX [Suspect]
     Active Substance: CANNABIDIOL
     Route: 048
     Dates: start: 201903
  3. EPIDIOLEX [Suspect]
     Active Substance: CANNABIDIOL
     Route: 048
     Dates: start: 201903
  4. EPIDIOLEX [Suspect]
     Active Substance: CANNABIDIOL
     Dosage: 2.5 MILLILITER, BID
     Route: 048
     Dates: start: 201903
  5. EPIDIOLEX [Suspect]
     Active Substance: CANNABIDIOL
     Dates: start: 202101
  6. DEPAKOTE [Suspect]
     Active Substance: DIVALPROEX SODIUM
     Indication: Epilepsy
  7. ENTRESTO [Concomitant]
     Active Substance: SACUBITRIL\VALSARTAN
     Indication: Product used for unknown indication
  8. LAMICTAL [Concomitant]
     Active Substance: LAMOTRIGINE
     Indication: Epilepsy
  9. LAMICTAL [Concomitant]
     Active Substance: LAMOTRIGINE
  10. LAMICTAL [Concomitant]
     Active Substance: LAMOTRIGINE
  11. KLONOPIN [Concomitant]
     Active Substance: CLONAZEPAM
     Indication: Epilepsy
     Route: 048
  12. KEPPRA [Concomitant]
     Active Substance: LEVETIRACETAM
     Indication: Epilepsy

REACTIONS (21)
  - Death [Fatal]
  - Pneumonia aspiration [Not Recovered/Not Resolved]
  - Respiratory tract infection [Unknown]
  - Muscular weakness [Not Recovered/Not Resolved]
  - Decreased appetite [Unknown]
  - Weight decreased [Unknown]
  - Cough [Unknown]
  - Pyrexia [Unknown]
  - Depressed level of consciousness [Recovered/Resolved]
  - Seizure [Unknown]
  - Hospitalisation [Not Recovered/Not Resolved]
  - Pneumonia [Not Recovered/Not Resolved]
  - Toxicity to various agents [Recovered/Resolved]
  - Blood albumin decreased [Recovered/Resolved]
  - Asthenia [Not Recovered/Not Resolved]
  - Gait disturbance [Not Recovered/Not Resolved]
  - Somnolence [Not Recovered/Not Resolved]
  - Eye movement disorder [Recovered/Resolved]
  - Drug level increased [Recovered/Resolved]
  - Inappropriate schedule of product administration [Unknown]
  - Therapeutic response unexpected [Unknown]

NARRATIVE: CASE EVENT DATE: 20230201
